FAERS Safety Report 6812264-5 (Version None)
Quarter: 2010Q3

REPORT INFORMATION
  Report Type: 
  Country: None (occurrence: None)
  Receive Date: 20100701
  Receipt Date: 20100618
  Transmission Date: 20110219
  Serious: Yes (Other)
  Sender: FDA-Public Use
  Company Number: PHHY2010FR41241

PATIENT
  Age: 77 Year
  Sex: Male

DRUGS (2)
  1. RASILEZ [Suspect]
     Indication: HYPERTENSION
     Dosage: 150 MG/DAILY
     Route: 048
     Dates: start: 20091130, end: 20100128
  2. RASILEZ [Suspect]
     Dosage: 300 MG/DAILY
     Route: 048
     Dates: start: 20100129, end: 20100430

REACTIONS (4)
  - BLOOD PRESSURE INADEQUATELY CONTROLLED [None]
  - CREATININE RENAL CLEARANCE DECREASED [None]
  - MICROALBUMINURIA [None]
  - PALPITATIONS [None]
